FAERS Safety Report 15022660 (Version 1)
Quarter: 2018Q2

REPORT INFORMATION
  Report Type: Spontaneous
  Country: US (occurrence: US)
  Receive Date: 20180618
  Receipt Date: 20180618
  Transmission Date: 20180711
  Serious: Yes (Other)
  Sender: FDA-Public Use
  Company Number: US-PFIZER INC-2018243394

PATIENT
  Age: 75 Year
  Sex: Male
  Weight: 96.16 kg

DRUGS (6)
  1. BENADRYL [Concomitant]
     Active Substance: DIPHENHYDRAMINE HYDROCHLORIDE
     Indication: SLEEP DISORDER
     Dosage: 2 DF, DAILY(2 AT NIGHT)
  2. GABAPENTIN. [Suspect]
     Active Substance: GABAPENTIN
     Dosage: 3600 MG, DAILY(3600 MG A DAY)
  3. MARIJUANA [Concomitant]
     Active Substance: CANNABIS SATIVA SUBSP. INDICA TOP
     Indication: NEUROPATHY PERIPHERAL
  4. TOVIAZ [Concomitant]
     Active Substance: FESOTERODINE FUMARATE
     Indication: INCONTINENCE
     Dosage: UNK
  5. MELATONIN [Concomitant]
     Active Substance: MELATONIN
     Indication: SLEEP DISORDER
     Dosage: 2 DF, DAILY(2 AT NIGHT)
  6. GABAPENTIN. [Suspect]
     Active Substance: GABAPENTIN
     Indication: NEUROPATHY PERIPHERAL
     Dosage: 600 MG, 3X/DAY(600 MG THREE TIMES A DAY)

REACTIONS (4)
  - Back disorder [Unknown]
  - Drug ineffective for unapproved indication [Unknown]
  - Intentional product misuse [Unknown]
  - Memory impairment [Unknown]
